FAERS Safety Report 13885364 (Version 1)
Quarter: 2017Q3

REPORT INFORMATION
  Report Type: Spontaneous
  Country: IT (occurrence: IT)
  Receive Date: 20170821
  Receipt Date: 20170821
  Transmission Date: 20171127
  Serious: Yes (Disabling, Other)
  Sender: FDA-Public Use
  Company Number: IT-ACCORD-057338

PATIENT
  Age: 63 Year
  Sex: Male
  Weight: 72 kg

DRUGS (2)
  1. BICALUTAMIDE. [Suspect]
     Active Substance: BICALUTAMIDE
     Indication: PROSTATE CANCER
     Route: 048
     Dates: start: 20160601
  2. ZOPRANOL [Concomitant]
     Active Substance: ZOFENOPRIL
     Indication: HYPERTENSION
     Dosage: STRENGTH: 30 MG
     Route: 048
     Dates: start: 20140101

REACTIONS (8)
  - Anaemia [Recovering/Resolving]
  - Leukopenia [Unknown]
  - Diabetes mellitus [Unknown]
  - Diarrhoea [Unknown]
  - Cerebral ischaemia [Recovered/Resolved with Sequelae]
  - Therapy non-responder [Recovered/Resolved with Sequelae]
  - Glycosuria [Recovered/Resolved with Sequelae]
  - Atrial fibrillation [Unknown]

NARRATIVE: CASE EVENT DATE: 20161208
